FAERS Safety Report 24545242 (Version 1)
Quarter: 2024Q4

REPORT INFORMATION
  Report Type: Spontaneous
  Country: US (occurrence: US)
  Receive Date: 20241024
  Receipt Date: 20241024
  Transmission Date: 20250115
  Serious: Yes (Other)
  Sender: OCULAR
  Company Number: US-OCULAR THERAPEUTIX-2024OCX00130

PATIENT

DRUGS (1)
  1. DEXTENZA [Suspect]
     Active Substance: DEXAMETHASONE
     Dosage: 0.4 MG, SINGLE, LACRIMAL CANALICULAR INSERTION
     Route: 047
     Dates: start: 2024

REACTIONS (2)
  - Iris adhesions [Unknown]
  - Pain [Unknown]

NARRATIVE: CASE EVENT DATE: 20240101
